FAERS Safety Report 24956266 (Version 1)
Quarter: 2025Q1

REPORT INFORMATION
  Report Type: Spontaneous
  Country: US (occurrence: None)
  Receive Date: 20250211
  Receipt Date: 20250211
  Transmission Date: 20250408
  Serious: Yes (Other)
  Sender: FDA-CTU
  Company Number: None

PATIENT
  Age: 64 Year
  Sex: Male
  Weight: 103.5 kg

DRUGS (3)
  1. PANZYGA [Suspect]
     Active Substance: HUMAN IMMUNOGLOBULIN G
     Indication: Transplant rejection
     Dosage: OTHER FREQUENCY : EVERY 4 WEEKS;?
     Route: 041
  2. Diphenhydramine 50mg PO premed [Concomitant]
     Dates: start: 20250201, end: 20250201
  3. Acetaminophen 650mg PO premed [Concomitant]
     Dates: start: 20250201, end: 20250201

REACTIONS (2)
  - Lip swelling [None]
  - Swollen tongue [None]

NARRATIVE: CASE EVENT DATE: 20250201
